FAERS Safety Report 16608102 (Version 1)
Quarter: 2019Q3

REPORT INFORMATION
  Report Type: Spontaneous
  Country: FR (occurrence: FR)
  Receive Date: 20190722
  Receipt Date: 20190722
  Transmission Date: 20191004
  Serious: Yes (Hospitalization)
  Sender: FDA-Public Use
  Company Number: FR-PFIZER INC-2019304204

PATIENT
  Age: 61 Year
  Sex: Female
  Weight: 38 kg

DRUGS (4)
  1. NEULEPTIL [PERICIAZINE] [Suspect]
     Active Substance: PERICIAZINE
     Dosage: 25 GTT, SINGLE
     Route: 048
     Dates: start: 20190604, end: 20190604
  2. DEPAMIDE [Suspect]
     Active Substance: VALPROMIDE
     Dosage: 300 MG, SINGLE
     Route: 048
     Dates: start: 20190604, end: 20190604
  3. GABAPENTIN. [Suspect]
     Active Substance: GABAPENTIN
     Dosage: 800 MG, SINGLE
     Route: 048
     Dates: start: 20190604, end: 20190604
  4. LOXAPAC [LOXAPINE] [Suspect]
     Active Substance: LOXAPINE
     Dosage: 25 MG, SINGLE
     Route: 048
     Dates: start: 20190604, end: 20190604

REACTIONS (4)
  - Tachycardia [Recovering/Resolving]
  - Respiratory acidosis [Recovering/Resolving]
  - Coma [Recovering/Resolving]
  - Wrong product administered [Unknown]

NARRATIVE: CASE EVENT DATE: 20190604
